FAERS Safety Report 25862007 (Version 1)
Quarter: 2025Q3

REPORT INFORMATION
  Report Type: Spontaneous
  Country: US (occurrence: US)
  Receive Date: 20250930
  Receipt Date: 20250930
  Transmission Date: 20251021
  Serious: No
  Sender: ELI LILLY AND COMPANY
  Company Number: US-ELI_LILLY_AND_COMPANY-US202509026407

PATIENT
  Age: 63 Year
  Sex: Male

DRUGS (3)
  1. EMGALITY [Suspect]
     Active Substance: GALCANEZUMAB-GNLM
     Indication: Cluster headache
     Route: 065
  2. OXYGEN [Concomitant]
     Active Substance: OXYGEN
     Indication: Cluster headache
     Route: 065
  3. IMITREX [Concomitant]
     Active Substance: SUMATRIPTAN SUCCINATE
     Indication: Cluster headache
     Route: 065

REACTIONS (2)
  - Neck pain [Unknown]
  - Prescribed underdose [Unknown]

NARRATIVE: CASE EVENT DATE: 20250901
